FAERS Safety Report 18431675 (Version 1)
Quarter: 2020Q4

REPORT INFORMATION
  Report Type: Spontaneous
  Country: US (occurrence: US)
  Receive Date: 20201027
  Receipt Date: 20201027
  Transmission Date: 20210114
  Serious: Yes (Hospitalization)
  Sender: FDA-Public Use
  Company Number: None

PATIENT
  Age: 56 Year
  Sex: Male

DRUGS (8)
  1. MYCOPHENOLATE 500MG TAB [Suspect]
     Active Substance: MYCOPHENOLIC ACID
     Indication: PRODUCT USED FOR UNKNOWN INDICATION
     Dosage: TABS (1500MG) BID PO
     Route: 048
     Dates: start: 20190326
  2. TRELIGY ELLIPT [Concomitant]
  3. PREDNISONE. [Concomitant]
     Active Substance: PREDNISONE
  4. ALBUTEROL. [Concomitant]
     Active Substance: ALBUTEROL
  5. FUROSEMIDE. [Concomitant]
     Active Substance: FUROSEMIDE
  6. QSYMIA [Concomitant]
     Active Substance: PHENTERMINE HYDROCHLORIDE\TOPIRAMATE
  7. ALLOPURINOL. [Concomitant]
     Active Substance: ALLOPURINOL
  8. PENTOXIFYLLI ER [Concomitant]

REACTIONS (2)
  - Therapy interrupted [None]
  - Oxygen saturation decreased [None]

NARRATIVE: CASE EVENT DATE: 20201006
